FAERS Safety Report 18652535 (Version 1)
Quarter: 2020Q4

REPORT INFORMATION
  Report Type: Spontaneous
  Country: US (occurrence: US)
  Receive Date: 20201222
  Receipt Date: 20201222
  Transmission Date: 20210114
  Serious: Yes (Hospitalization)
  Sender: FDA-Public Use
  Company Number: US-GW PHARMA-202012USGW04436

PATIENT

DRUGS (1)
  1. EPIDIOLEX [Suspect]
     Active Substance: CANNABIDIOL
     Indication: LENNOX-GASTAUT SYNDROME
     Dosage: 500 MILLIGRAM, BID (8 AM AND 8 PM)
     Route: 048

REACTIONS (3)
  - Myocardial infarction [Unknown]
  - Generalised tonic-clonic seizure [Unknown]
  - Sepsis [Unknown]

NARRATIVE: CASE EVENT DATE: 2020
